FAERS Safety Report 6274223-3 (Version None)
Quarter: 2009Q3

REPORT INFORMATION
  Report Type: 
  Country: None (occurrence: None)
  Receive Date: 20090720
  Receipt Date: 20090713
  Transmission Date: 20100115
  Serious: Yes (Hospitalization)
  Sender: FDA-Public Use
  Company Number: JP-BRISTOL-MYERS SQUIBB COMPANY-14702286

PATIENT
  Age: 45 Year
  Sex: Female

DRUGS (3)
  1. TAXOL [Suspect]
     Indication: BREAST CANCER
     Route: 041
  2. DECADRON [Suspect]
     Indication: BREAST CANCER
     Dosage: NO OF COURSES:7
     Route: 065
  3. HERCEPTIN [Suspect]

REACTIONS (1)
  - HEPATITIS B [None]
